FAERS Safety Report 18815854 (Version 1)
Quarter: 2021Q1

REPORT INFORMATION
  Report Type: Spontaneous
  Country: US (occurrence: US)
  Receive Date: 20210130
  Receipt Date: 20210130
  Transmission Date: 20210419
  Serious: Yes (Hospitalization)
  Sender: FDA-Public Use
  Company Number: None

PATIENT
  Age: 77 Year
  Sex: Male
  Weight: 59.9 kg

DRUGS (4)
  1. CLOPIDOGREL [Concomitant]
     Active Substance: CLOPIDOGREL BISULFATE
  2. ETOPOSIDE (VP?16) [Suspect]
     Active Substance: ETOPOSIDE
     Dates: end: 20201218
  3. RIVAROXABAN [Concomitant]
     Active Substance: RIVAROXABAN
  4. CARBOPLATIN. [Suspect]
     Active Substance: CARBOPLATIN
     Dates: end: 20201216

REACTIONS (5)
  - Dyspnoea exertional [None]
  - Anaemia [None]
  - Haemoglobin decreased [None]
  - Therapy interrupted [None]
  - Melaena [None]

NARRATIVE: CASE EVENT DATE: 20210116
